FAERS Safety Report 16641726 (Version 1)
Quarter: 2019Q3

REPORT INFORMATION
  Report Type: Spontaneous
  Country: AT (occurrence: AT)
  Receive Date: 20190729
  Receipt Date: 20190729
  Transmission Date: 20191004
  Serious: Yes (Hospitalization, Other)
  Sender: FDA-Public Use
  Company Number: AT-ACCORD-137523

PATIENT
  Age: 36 Year
  Sex: Male

DRUGS (28)
  1. CIPRALEX [Concomitant]
     Active Substance: ESCITALOPRAM OXALATE
     Dosage: SINCE A LONG TIME
  2. DEPAKINE CHRONO [Interacting]
     Active Substance: VALPROATE SODIUM
     Indication: PRODUCT USED FOR UNKNOWN INDICATION
     Dosage: THERAPY END DATE- 13-MAR-2019, RECEIVED AS 250 MG FROM 14-MAR-2019 TO 15-MAR-2019.
     Route: 048
     Dates: start: 20190311
  3. TOPAMAX [Suspect]
     Active Substance: TOPIRAMATE
     Route: 048
     Dates: start: 201903
  4. OLEOVIT D3 [Concomitant]
     Active Substance: CHOLECALCIFEROL
     Route: 048
     Dates: start: 20190310
  5. ABILIFY [Concomitant]
     Active Substance: ARIPIPRAZOLE
     Dosage: RECEIVED AS 50 MG FROM 19-MAR-2019., 30 MG ON 13-MAR-2019.
     Dates: start: 20190314, end: 20190318
  6. SEROQUEL [Concomitant]
     Active Substance: QUETIAPINE FUMARATE
     Dosage: RECEIVED 1600 MG END DATE-08-FEB-2019?SINCE A LONG TIME
     Dates: start: 20190209
  7. ZELDOX [Concomitant]
     Active Substance: ZIPRASIDONE
     Dates: start: 20190228, end: 20190302
  8. DEPAKINE CHRONO [Interacting]
     Active Substance: VALPROATE SODIUM
     Indication: PRODUCT USED FOR UNKNOWN INDICATION
     Route: 048
     Dates: start: 20190308, end: 20190310
  9. ZELDOX [Concomitant]
     Active Substance: ZIPRASIDONE
     Dates: start: 20190305
  10. DEPAKINE CHRONO [Interacting]
     Active Substance: VALPROATE SODIUM
     Indication: PRODUCT USED FOR UNKNOWN INDICATION
     Route: 048
     Dates: start: 20190209, end: 20190307
  11. METOHEXAL [Concomitant]
     Active Substance: METOPROLOL
     Dates: start: 20190326, end: 20190327
  12. LYRICA [Concomitant]
     Active Substance: PREGABALIN
     Dates: start: 20190213, end: 20190228
  13. TRITTICO [Concomitant]
     Active Substance: TRAZODONE HYDROCHLORIDE
     Dosage: ALSO RECEIVED AS 300 MG FROM 22-MAR-2019, 100 MG ON 19-MAR-2019.
     Dates: start: 20190320, end: 20190321
  14. EUCREAS [Concomitant]
     Active Substance: METFORMIN HYDROCHLORIDE\VILDAGLIPTIN
     Dosage: DOSE NOT CHANGED, RECEIVED 1.5 DF FROM 28-FEB-2019.
     Route: 048
     Dates: start: 20190214, end: 20190227
  15. ZELDOX [Concomitant]
     Active Substance: ZIPRASIDONE
     Dates: start: 20190303, end: 20190304
  16. METOHEXAL [Concomitant]
     Active Substance: METOPROLOL
     Dates: start: 20190328
  17. RIVOTRIL [Concomitant]
     Active Substance: CLONAZEPAM
     Dosage: SINCE A LONG TIME
  18. METOHEXAL [Concomitant]
     Active Substance: METOPROLOL
     Dates: start: 20190325
  19. LYRICA [Concomitant]
     Active Substance: PREGABALIN
     Dates: start: 20190301, end: 20190306
  20. TOPIRAMATE. [Suspect]
     Active Substance: TOPIRAMATE
     Indication: PRODUCT USED FOR UNKNOWN INDICATION
     Dosage: THERAPY END DATE- 21-MAR-2019, , RECEIVED 200 MG FROM 22-MAR-2019.
     Route: 048
  21. METHOTREXATE. [Concomitant]
     Active Substance: METHOTREXATE
     Dosage: RECEIVED AS 142.5 MG FROM 26-MAR-2019 TO 27-MAR-2019.
     Route: 048
     Dates: start: 20190328
  22. LYRICA [Concomitant]
     Active Substance: PREGABALIN
     Dates: start: 20190212, end: 20190312
  23. ABILIFY [Concomitant]
     Active Substance: ARIPIPRAZOLE
     Dosage: SINCE A LONG TIME
     Dates: start: 20190312, end: 20190318
  24. LYRICA [Concomitant]
     Active Substance: PREGABALIN
     Dates: start: 20190307, end: 20190312
  25. METHOTREXATE. [Concomitant]
     Active Substance: METHOTREXATE
     Route: 048
     Dates: start: 20190325
  26. INEGY [Concomitant]
     Active Substance: EZETIMIBE\SIMVASTATIN
     Dosage: STRENGTH: 10 MG/20 MG SINCE A LONG TIME
     Route: 048
  27. ZELDOX [Concomitant]
     Active Substance: ZIPRASIDONE
     Dates: start: 20190226, end: 20190227
  28. LYRICA [Concomitant]
     Active Substance: PREGABALIN
     Dosage: RECEIVED 300 MG FROM 12-FEB-2019, SINCE A LONG TIME, 600 MG FROM 13-MAR-2019.
     Dates: start: 20190313

REACTIONS (2)
  - Hyperammonaemia [Recovered/Resolved]
  - Drug interaction [Unknown]

NARRATIVE: CASE EVENT DATE: 20190314
